FAERS Safety Report 5105596-2 (Version None)
Quarter: 2006Q3

REPORT INFORMATION
  Report Type: 
  Country: None (occurrence: None)
  Receive Date: 20060731
  Receipt Date: 20060518
  Transmission Date: 20061208
  Serious: Yes (Other)
  Sender: FDA-Public Use
  Company Number: US-JNJFOC-20060504040

PATIENT
  Age: 42 Year
  Sex: Female
  Weight: 80.2867 kg

DRUGS (4)
  1. RISPERDAL [Suspect]
     Indication: BIPOLAR DISORDER
     Dosage: 3.5 MG, 1 IN 1 DAY, ORAL
     Route: 048
     Dates: start: 19950101
  2. ZOLOFT [Concomitant]
     Indication: DEPRESSION
  3. ZESTRIL [Concomitant]
  4. NIACIN NO FLUSH (NICOTINAMIDE) [Concomitant]

REACTIONS (5)
  - ANAEMIA [None]
  - CENTRAL NERVOUS SYSTEM STIMULATION [None]
  - HALLUCINATION [None]
  - INSOMNIA [None]
  - NIGHTMARE [None]
